FAERS Safety Report 5582097-9 (Version None)
Quarter: 2008Q1

REPORT INFORMATION
  Report Type: 
  Country: None (occurrence: None)
  Receive Date: 20080104
  Receipt Date: 20071227
  Transmission Date: 20080703
  Serious: Yes (Death)
  Sender: FDA-Public Use
  Company Number: DE-GENENTECH-253672

PATIENT
  Sex: Male
  Weight: 93 kg

DRUGS (6)
  1. MABTHERA [Suspect]
     Indication: NON-HODGKIN'S LYMPHOMA
     Dosage: 50 MG, UNK
     Dates: start: 20071221
  2. MABTHERA [Suspect]
     Dosage: 75 MG, UNK
  3. CLEMASTINE FUMARATE [Suspect]
     Indication: PREMEDICATION
     Dosage: 2 MG, UNK
     Dates: start: 20071221
  4. DEXAMETHASONE TAB [Suspect]
     Indication: PREMEDICATION
     Dosage: 8 MG, UNK
     Dates: start: 20071221
  5. MITOXANTRONE [Suspect]
     Indication: DRUG USE FOR UNKNOWN INDICATION
     Dosage: 16 MG, UNK
     Dates: start: 20071224, end: 20071224
  6. SUSPECTED DRUG [Suspect]
     Indication: DRUG USE FOR UNKNOWN INDICATION
     Dosage: 72 MG, UNK
     Dates: start: 20071224, end: 20071224

REACTIONS (2)
  - INTESTINAL PERFORATION [None]
  - METABOLIC ACIDOSIS [None]
